FAERS Safety Report 10543037 (Version 1)
Quarter: 2014Q4

REPORT INFORMATION
  Report Type: Report from Study
  Country: US (occurrence: US)
  Receive Date: 20141027
  Receipt Date: 20141027
  Transmission Date: 20150529
  Serious: Yes (Hospitalization)
  Sender: FDA-Public Use
  Company Number: US-BAYER-2014-154359

PATIENT
  Age: 84 Year
  Sex: Female

DRUGS (1)
  1. STIVARGA [Suspect]
     Active Substance: REGORAFENIB
     Indication: APPENDIX CANCER
     Dosage: 160 MG, QD (4 X 40 MG)
     Route: 048
     Dates: start: 20140909, end: 20141008

REACTIONS (2)
  - Dehydration [None]
  - Decreased appetite [None]

NARRATIVE: CASE EVENT DATE: 20141008
